FAERS Safety Report 9155683 (Version 1)
Quarter: 2013Q1

REPORT INFORMATION
  Report Type: Spontaneous
  Country: US (occurrence: US)
  Receive Date: 20130311
  Receipt Date: 20130311
  Transmission Date: 20140127
  Serious: Yes (Other)
  Sender: FDA-Public Use
  Company Number: US-TEVA-391056USA

PATIENT
  Sex: Female

DRUGS (1)
  1. TREANDA [Suspect]
     Indication: OVARIAN CANCER
     Route: 042

REACTIONS (3)
  - Cytokine release syndrome [Unknown]
  - Fatigue [Unknown]
  - Off label use [Unknown]
